FAERS Safety Report 5976648-X (Version None)
Quarter: 2008Q4

REPORT INFORMATION
  Report Type: 
  Country: None (occurrence: None)
  Receive Date: 20081201
  Receipt Date: 20081201
  Transmission Date: 20090506
  Serious: Yes (Life-Threatening, Hospitalization, Disabling)
  Sender: FDA-Public Use
  Company Number: None

PATIENT
  Sex: Female
  Weight: 80.7403 kg

DRUGS (1)
  1. DETROL LA [Suspect]
     Indication: URINARY INCONTINENCE
     Dosage: 3MG 1 A DAY
     Dates: start: 20080715, end: 20080716

REACTIONS (6)
  - AMNESIA [None]
  - CEREBRAL HYPOPERFUSION [None]
  - DEAFNESS [None]
  - FEELING ABNORMAL [None]
  - MIGRAINE [None]
  - VISUAL ACUITY REDUCED [None]
